FAERS Safety Report 5599525-5 (Version None)
Quarter: 2007Q4

REPORT INFORMATION
  Report Type: 
  Country: None (occurrence: None)
  Receive Date: 20071231
  Receipt Date: 20070320
  Transmission Date: 20080405
  Serious: Yes (Other)
  Sender: FDA-Public Use
  Company Number: 154440USA

PATIENT
  Age: 63 Year
  Sex: Male

DRUGS (3)
  1. FOSINOPRIL SODIUM [Suspect]
     Dates: start: 20050101, end: 20050101
  2. LISINOPRIL [Suspect]
     Dosage: 1/2 TABLET
     Dates: start: 20060101
  3. ACETYLSALICYLIC ACID SRT [Concomitant]

REACTIONS (6)
  - CEREBROVASCULAR ACCIDENT [None]
  - DROOLING [None]
  - HAEMORRHAGE [None]
  - HYPOTENSION [None]
  - LOSS OF CONSCIOUSNESS [None]
  - TRANSIENT ISCHAEMIC ATTACK [None]
